FAERS Safety Report 18872865 (Version 2)
Quarter: 2021Q4

REPORT INFORMATION
  Report Type: Spontaneous
  Country: US (occurrence: US)
  Receive Date: 20210210
  Receipt Date: 20211028
  Transmission Date: 20220303
  Serious: No
  Sender: FDA-Public Use
  Company Number: US-SA-SAC20210206000795

PATIENT
  Age: 52 Year
  Sex: Female

DRUGS (9)
  1. AUBAGIO [Suspect]
     Active Substance: TERIFLUNOMIDE
     Indication: Multiple sclerosis
     Dosage: 14 MG, QD
     Route: 048
     Dates: start: 201903
  2. LORAZEPAM [Concomitant]
     Active Substance: LORAZEPAM
     Dosage: 0.5 MG
  3. CALCIUM 600 PLUS VITAMIN D3 [Concomitant]
  4. NEURONTIN [Concomitant]
     Active Substance: GABAPENTIN
  5. VITAMIN D NOS [Concomitant]
     Active Substance: VITAMIN D NOS
  6. IBUPROFEN [Concomitant]
     Active Substance: IBUPROFEN
  7. DIGESTIVE ADVANTAGE [BACILLUS COAGULANS] [Concomitant]
  8. FLUTICASONE PROPIONATE [Concomitant]
     Active Substance: FLUTICASONE PROPIONATE
  9. TYLENOL [Concomitant]
     Active Substance: ACETAMINOPHEN

REACTIONS (11)
  - Peripheral swelling [Not Recovered/Not Resolved]
  - Condition aggravated [Not Recovered/Not Resolved]
  - Ageusia [Unknown]
  - Pain [Unknown]
  - Fatigue [Unknown]
  - Pain in extremity [Not Recovered/Not Resolved]
  - Arthralgia [Unknown]
  - Diarrhoea [Unknown]
  - Headache [Unknown]
  - Alopecia [Unknown]
  - Nausea [Unknown]

NARRATIVE: CASE EVENT DATE: 20210101
